FAERS Safety Report 25368405 (Version 1)
Quarter: 2025Q2

REPORT INFORMATION
  Report Type: Spontaneous
  Country: US (occurrence: None)
  Receive Date: 20250527
  Receipt Date: 20250527
  Transmission Date: 20250716
  Serious: Yes (Other)
  Sender: FDA-CTU
  Company Number: None

PATIENT
  Age: 81 Year
  Sex: Female
  Weight: 74.25 kg

DRUGS (1)
  1. POTASSIUM CHLORIDE [Suspect]
     Active Substance: POTASSIUM CHLORIDE
     Dosage: FREQUENCY : DAILY;?
     Route: 048
     Dates: start: 20250126, end: 20250206

REACTIONS (3)
  - Pain in extremity [None]
  - Myalgia [None]
  - Fatigue [None]

NARRATIVE: CASE EVENT DATE: 20250206
